FAERS Safety Report 20187595 (Version 1)
Quarter: 2021Q4

REPORT INFORMATION
  Report Type: Spontaneous
  Country: US (occurrence: None)
  Receive Date: 20211215
  Receipt Date: 20211215
  Transmission Date: 20220303
  Serious: Yes (Other)
  Sender: FDA-Public Use
  Company Number: None

PATIENT
  Age: 67 Year
  Sex: Male
  Weight: 83.25 kg

DRUGS (13)
  1. .DELTA.8-TETRAHYDROCANNABINOL\HERBALS [Suspect]
     Active Substance: .DELTA.8-TETRAHYDROCANNABINOL\HERBALS
     Indication: Arthralgia
     Dosage: OTHER QUANTITY : 1 GUMMY(4.8GM);?FREQUENCY : EVERY 6 HOURS;?
     Route: 048
     Dates: start: 20211209, end: 20211209
  2. MODERNA COVID-19 VACCINE [Suspect]
     Active Substance: ELASOMERAN
  3. BIKTARVY [Concomitant]
     Active Substance: BICTEGRAVIR SODIUM\EMTRICITABINE\TENOFOVIR ALAFENAMIDE FUMARATE
  4. SINGULAIR [Concomitant]
     Active Substance: MONTELUKAST SODIUM
  5. ACYCLOVIR [Concomitant]
     Active Substance: ACYCLOVIR
  6. LISINOPRIL [Concomitant]
     Active Substance: LISINOPRIL
  7. TAMSULOSIN [Concomitant]
  8. Depo-testostero [Concomitant]
  9. Vid D 5000 is [Concomitant]
  10. ZINC [Concomitant]
     Active Substance: ZINC
  11. MULTI-VITAMIN [Concomitant]
     Active Substance: .ALPHA.-TOCOPHEROL ACETATE, DL-\ASCORBIC ACID\CYANOCOBALAMIN\FLUORIDE ION\FOLIC ACID\NIACIN\PYRIDOXI
  12. ALLEGRA [Concomitant]
     Active Substance: FEXOFENADINE HYDROCHLORIDE
  13. skin creams [Concomitant]

REACTIONS (7)
  - Heart rate increased [None]
  - Dizziness [None]
  - Balance disorder [None]
  - Hallucination [None]
  - Speech disorder [None]
  - Confusional state [None]
  - Fear [None]

NARRATIVE: CASE EVENT DATE: 20211209
